FAERS Safety Report 5804665-9 (Version None)
Quarter: 2008Q3

REPORT INFORMATION
  Report Type: 
  Country: None (occurrence: None)
  Receive Date: 20080709
  Receipt Date: 20080707
  Transmission Date: 20090109
  Serious: Yes (Hospitalization)
  Sender: FDA-Public Use
  Company Number: FR-BRISTOL-MYERS SQUIBB COMPANY-13561667

PATIENT
  Age: 78 Year
  Sex: Female

DRUGS (8)
  1. GLUCOPHAGE [Suspect]
     Indication: TYPE 2 DIABETES MELLITUS
     Route: 048
     Dates: end: 20060710
  2. COUMADIN [Interacting]
     Dosage: WARFARIN SODIUM STOPPED ON 10-JUL-2006 REINTRODUCED AT THE END OF JULY WITH NEGATIVE RECHAELLENGE.
     Route: 048
  3. LEVOTHYROX [Interacting]
     Dates: end: 20060710
  4. HEMIGOXINE NATIVELLE [Suspect]
     Route: 048
     Dates: end: 20060710
  5. ZESTRIL [Suspect]
     Dates: end: 20060710
  6. LASIX [Suspect]
     Dates: end: 20060710
  7. AMLOR [Suspect]
     Dates: end: 20060710
  8. OMEPRAZOLE [Concomitant]
     Dates: end: 20060710

REACTIONS (4)
  - DRUG INTERACTION [None]
  - FALL [None]
  - PROTHROMBIN TIME SHORTENED [None]
  - RENAL FAILURE ACUTE [None]
